FAERS Safety Report 6162567-5 (Version None)
Quarter: 2009Q2

REPORT INFORMATION
  Report Type: 
  Country: None (occurrence: None)
  Receive Date: 20090421
  Receipt Date: 20060317
  Transmission Date: 20091009
  Serious: No
  Sender: FDA-Public Use
  Company Number: US-SOLVAY-00206000911

PATIENT
  Age: 46 Year
  Sex: Female
  Weight: 50 kg

DRUGS (9)
  1. PROGESTERONE [Concomitant]
     Indication: HORMONE REPLACEMENT THERAPY
     Dosage: DAILY DOSE: 20 MILLIGRAM(S) FOR THE FIRST 14 DAYS OF THE MONTH.
     Route: 062
     Dates: start: 20050501
  2. ANDROGEL [Suspect]
     Indication: ACCIDENTAL EXPOSURE
     Dosage: DAILY DOSE: 5 GRAM(S)
     Route: 062
     Dates: start: 20020101
  3. PROGESTERONE [Concomitant]
     Dosage: DAILY DOSE: 60 MILLIGRAM(S) FOR DAYS 15-25 OF THE MONTH.
     Route: 062
     Dates: start: 20050501
  4. VITAMIN B COMPLEX CAP [Concomitant]
     Indication: ILL-DEFINED DISORDER
     Dosage: DAILY DOSE:  UNKNOWN
     Route: 048
  5. CALCIUM [Concomitant]
     Indication: ILL-DEFINED DISORDER
     Dosage: DAILY DOSE:  UNKNOWN
     Route: 048
  6. MAGNESIUM SULFATE [Concomitant]
     Indication: ILL-DEFINED DISORDER
     Dosage: DAILY DOSE:  UNKNOWN
     Route: 048
  7. FISH OIL [Concomitant]
     Indication: ILL-DEFINED DISORDER
     Dosage: DAILY DOSE:  UNKNOWN
     Route: 048
  8. N-ACETYL CYSTEINE [Concomitant]
     Indication: ILL-DEFINED DISORDER
     Dosage: DAILY DOSE:  UNKNOWN
     Route: 048
  9. ALPHA-LIPOIC ACID [Concomitant]
     Indication: ILL-DEFINED DISORDER
     Dosage: DAILY DOSE:  UNKNOWN
     Route: 048

REACTIONS (4)
  - BLOOD TESTOSTERONE INCREASED [None]
  - BREAST TENDERNESS [None]
  - LOSS OF LIBIDO [None]
  - MOOD ALTERED [None]
